FAERS Safety Report 19713791 (Version 1)
Quarter: 2021Q3

REPORT INFORMATION
  Report Type: Report from Study
  Country: US (occurrence: US)
  Receive Date: 20210817
  Receipt Date: 20210817
  Transmission Date: 20211014
  Serious: No
  Sender: FDA-Public Use
  Company Number: NVSC2021US183997

PATIENT
  Sex: Male

DRUGS (1)
  1. ENTRESTO [Suspect]
     Active Substance: SACUBITRIL\VALSARTAN
     Indication: PRODUCT USED FOR UNKNOWN INDICATION
     Dosage: 50 MG (24/26MG), BID
     Route: 048

REACTIONS (4)
  - Food poisoning [Recovered/Resolved]
  - Nausea [Recovered/Resolved]
  - Product dose omission issue [Unknown]
  - Illness [Recovered/Resolved]
